FAERS Safety Report 9315252 (Version 1)
Quarter: 2013Q2

REPORT INFORMATION
  Report Type: Spontaneous
  Country: US (occurrence: US)
  Receive Date: 20130529
  Receipt Date: 20130529
  Transmission Date: 20140414
  Serious: Yes (Hospitalization, Other)
  Sender: FDA-Public Use
  Company Number: US200907000484

PATIENT
  Age: 57 Year
  Sex: Male
  Weight: 90.7 kg

DRUGS (21)
  1. BYETTA PEN DISPOSABLE [Suspect]
     Indication: TYPE 2 DIABETES MELLITUS
     Route: 058
     Dates: start: 200608, end: 200906
  2. BYETTA PEN DISPOSABLE [Suspect]
     Indication: TYPE 2 DIABETES MELLITUS
     Route: 058
     Dates: start: 2007, end: 200901
  3. BYETTA PEN DISPOSABLE [Suspect]
     Indication: TYPE 2 DIABETES MELLITUS
     Route: 058
     Dates: start: 2007, end: 2007
  4. EXENATIDE 10MCG PEN, DISPOSABLE DEVICE [Concomitant]
  5. EXENATIDE 5MCG PEN, DISPOSABLE DEVICE [Concomitant]
  6. ACTOS [Concomitant]
     Indication: TYPE 2 DIABETES MELLITUS
  7. METFORMIN [Concomitant]
     Indication: TYPE 2 DIABETES MELLITUS
     Dates: start: 200906
  8. LOTREL [Concomitant]
     Indication: BLOOD PRESSURE
     Dosage: 10/20,QHS
     Route: 048
  9. CRESTOR [Concomitant]
     Indication: BLOOD CHOLESTEROL
  10. HYDROCODONE [Concomitant]
     Indication: PAIN
  11. MORPHINE [Concomitant]
     Indication: PAIN
     Dates: start: 200906, end: 200906
  12. ACIPHEX [Concomitant]
     Indication: GASTROOESOPHAGEAL REFLUX DISEASE
  13. AMLODIPINE BESYLATE [Concomitant]
     Indication: PAIN
  14. LEVAQUIN [Concomitant]
     Indication: URINARY TRACT INFECTION
  15. GLIMEPIRIDE [Concomitant]
  16. CIALIS [Concomitant]
  17. PREVACID [Concomitant]
     Route: 048
  18. LEVEMIR [Concomitant]
     Dosage: 47 UNITS
     Route: 058
  19. ZOCOR [Concomitant]
     Route: 048
  20. OMEPRAZOLE [Concomitant]
  21. MOBIC [Concomitant]
     Dosage: PRN

REACTIONS (5)
  - Pancreatitis relapsing [Recovering/Resolving]
  - Cholelithiasis [Unknown]
  - Blood glucose decreased [Recovered/Resolved]
  - Blood glucose increased [Not Recovered/Not Resolved]
  - Weight decreased [Unknown]
